FAERS Safety Report 9742649 (Version 2)
Quarter: 2013Q4

REPORT INFORMATION
  Report Type: Spontaneous
  Country: US (occurrence: US)
  Receive Date: 20131210
  Receipt Date: 20131219
  Transmission Date: 20140711
  Serious: No
  Sender: FDA-Public Use
  Company Number: US-009507513-1312USA003757

PATIENT
  Age: 38 Year
  Sex: Female

DRUGS (1)
  1. PROVENTIL [Suspect]
     Indication: BRONCHITIS
     Dosage: 2 PUFFS EVERY 4 YO 6 HOURS AS NEEDED
     Route: 055
     Dates: start: 201212

REACTIONS (3)
  - Drug dose omission [Unknown]
  - Bronchitis [Recovering/Resolving]
  - Product quality issue [Unknown]
